FAERS Safety Report 26163068 (Version 1)
Quarter: 2025Q4

REPORT INFORMATION
  Report Type: Spontaneous
  Country: US (occurrence: None)
  Receive Date: 20251216
  Receipt Date: 20251216
  Transmission Date: 20260118
  Serious: Yes (Hospitalization)
  Sender: FDA-CTU
  Company Number: None

PATIENT
  Age: 51 Year
  Sex: Male
  Weight: 129.7 kg

DRUGS (4)
  1. CYCLOPHOSPHAMIDE [Suspect]
     Active Substance: CYCLOPHOSPHAMIDE
     Dates: end: 20251212
  2. CYTARABINE [Suspect]
     Active Substance: CYTARABINE
     Dates: end: 20251211
  3. SPRYCEL [Suspect]
     Active Substance: DASATINIB
     Dates: end: 20251212
  4. PREDNISONE [Suspect]
     Active Substance: PREDNISONE
     Dates: end: 20251209

REACTIONS (1)
  - Weight increased [None]

NARRATIVE: CASE EVENT DATE: 20251212
